FAERS Safety Report 8480050-9 (Version None)
Quarter: 2012Q2

REPORT INFORMATION
  Report Type: 
  Country: None (occurrence: None)
  Receive Date: 20120629
  Receipt Date: 20120619
  Transmission Date: 20120825
  Serious: No
  Sender: FDA-Public Use
  Company Number: US-ASTRAZENECA-2010SE32137

PATIENT
  Age: 72 Year
  Sex: Female
  Weight: 77.1 kg

DRUGS (2)
  1. CALCIUM SUPPLEMENT IV [Concomitant]
  2. ARIMIDEX [Suspect]
     Indication: BREAST CANCER
     Route: 048
     Dates: start: 20090101

REACTIONS (8)
  - PRURITUS [None]
  - PAIN IN EXTREMITY [None]
  - DYSPEPSIA [None]
  - ALOPECIA [None]
  - FATIGUE [None]
  - MALAISE [None]
  - BLOOD CALCIUM DECREASED [None]
  - OSTEOPENIA [None]
